FAERS Safety Report 9785821 (Version 3)
Quarter: 2014Q2

REPORT INFORMATION
  Report Type: Spontaneous
  Country: US (occurrence: US)
  Receive Date: 20131227
  Receipt Date: 20140617
  Transmission Date: 20141212
  Serious: Yes (Hospitalization, Other)
  Sender: FDA-Public Use
  Company Number: US-BAYER-2013-157257

PATIENT
  Age: 33 Year
  Sex: Female
  Weight: 63.49 kg

DRUGS (2)
  1. MIRENA [Suspect]
     Indication: CONTRACEPTION
     Dosage: 20 MCG/24HR, CONT
     Route: 015
     Dates: start: 20090720, end: 20130411
  2. MIRENA [Suspect]
     Indication: MENORRHAGIA

REACTIONS (7)
  - Uterine perforation [None]
  - Device dislocation [None]
  - Injury [None]
  - Abdominal pain [None]
  - Emotional distress [None]
  - Anxiety [None]
  - Flank pain [None]
